FAERS Safety Report 4727635-0 (Version None)
Quarter: 2005Q3

REPORT INFORMATION
  Report Type: 
  Country: None (occurrence: None)
  Receive Date: 20050727
  Receipt Date: 20050727
  Transmission Date: 20060218
  Serious: Yes (Hospitalization)
  Sender: FDA-Public Use
  Company Number: None

PATIENT
  Age: 59 Year
  Sex: Male

DRUGS (15)
  1. COLYTE [Suspect]
     Indication: DIAGNOSTIC PROCEDURE
     Dosage: 1 GALLON ONE TIME
     Dates: start: 20050610, end: 20050610
  2. ALBUTEROL/IPRATROP [Concomitant]
  3. CLONAZEPAM [Concomitant]
  4. FLUNISOLIDE [Concomitant]
  5. FUROSEMIDE [Concomitant]
  6. GEMFIBROZIL [Concomitant]
  7. INSULIN NOVOLIN [Concomitant]
  8. LISINOPRIL [Concomitant]
  9. MONTELUKAST NA [Concomitant]
  10. NITROGLYCERIN [Concomitant]
  11. OMEPRAZOLE [Concomitant]
  12. QUETIAPINE FUMARATE [Concomitant]
  13. SERTRALINE HCL [Concomitant]
  14. SIMVASTATIN [Concomitant]
  15. THEOPHYLLINE [Concomitant]

REACTIONS (4)
  - BLOOD CREATINE INCREASED [None]
  - DEHYDRATION [None]
  - DIZZINESS [None]
  - HYPOTENSION [None]
